FAERS Safety Report 9702113 (Version 1)
Quarter: 2013Q4

REPORT INFORMATION
  Report Type: Spontaneous
  Country: US (occurrence: US)
  Receive Date: 20131121
  Receipt Date: 20131121
  Transmission Date: 20140711
  Serious: No
  Sender: FDA-Public Use
  Company Number: US-B.I. PHARMACEUTICALS,INC./RIDGEFIELD-2013-BI-36997BP

PATIENT
  Age: 61 Year
  Sex: Male
  Weight: 122 kg

DRUGS (2)
  1. PRADAXA [Suspect]
     Indication: ATRIAL FIBRILLATION
     Dosage: DAILY DOSE: 300 MG
     Route: 048
     Dates: start: 2011, end: 2011
  2. LEVOTHYROXINE [Concomitant]
     Indication: HYPOTHYROIDISM

REACTIONS (5)
  - Heart rate irregular [Recovered/Resolved]
  - Gallbladder pain [Recovered/Resolved]
  - Pneumonia [Not Recovered/Not Resolved]
  - Atrial fibrillation [Not Recovered/Not Resolved]
  - Body temperature increased [Recovered/Resolved]
